FAERS Safety Report 4908414-8 (Version None)
Quarter: 2006Q1

REPORT INFORMATION
  Report Type: 
  Country: None (occurrence: None)
  Receive Date: 20060210
  Receipt Date: 20050627
  Transmission Date: 20060701
  Serious: No
  Sender: FDA-Public Use
  Company Number: US-GLAXOSMITHKLINE-A0564318A

PATIENT
  Age: 25 Year
  Sex: Male

DRUGS (6)
  1. PAXIL [Suspect]
     Indication: DEPRESSION
     Dosage: 12.5ML PER DAY
     Route: 048
     Dates: start: 20050501
  2. OMEGA-3 [Concomitant]
  3. MULTIPLE MEDICATIONS [Concomitant]
  4. MAGNESIUM [Concomitant]
  5. VITAMIN B6 [Concomitant]
  6. FLAX SEED OIL [Concomitant]

REACTIONS (1)
  - DRUG INEFFECTIVE [None]
